FAERS Safety Report 4786635-5 (Version None)
Quarter: 2005Q3

REPORT INFORMATION
  Report Type: 
  Country: None (occurrence: None)
  Receive Date: 20050927
  Receipt Date: 20050713
  Transmission Date: 20060218
  Serious: Yes (Hospitalization)
  Sender: FDA-Public Use
  Company Number: USA0507102746

PATIENT
  Age: 57 Year
  Sex: Female
  Weight: 51 kg

DRUGS (10)
  1. STRATTERA [Suspect]
     Indication: ATTENTION DEFICIT/HYPERACTIVITY DISORDER
     Dosage: 40 MG/2 DAY
     Dates: start: 20040601, end: 20041212
  2. VASOTEC [Concomitant]
  3. LEVOXYL [Concomitant]
  4. CLONIDINE [Concomitant]
  5. BEXTRA [Concomitant]
  6. CELEBREX [Concomitant]
  7. ASPIRIN [Concomitant]
  8. ZOLOFT [Concomitant]
  9. PRILOSEC [Concomitant]
  10. ACTINAL (CYPROHEPTADINE HYDROCHLORIDE) [Concomitant]

REACTIONS (4)
  - ANXIETY [None]
  - FEELING ABNORMAL [None]
  - HYPERTENSION [None]
  - WEIGHT DECREASED [None]
